FAERS Safety Report 24849025 (Version 2)
Quarter: 2025Q3

REPORT INFORMATION
  Report Type: Spontaneous
  Country: EU (occurrence: EU)
  Receive Date: 20250116
  Receipt Date: 20250809
  Transmission Date: 20251021
  Serious: Yes (Hospitalization, Other)
  Sender: ALEXION PHARMACEUTICALS
  Company Number: EU-SA-2024SA366027

PATIENT
  Age: 10 Week
  Sex: Male
  Weight: 5.36 kg

DRUGS (1)
  1. NIRSEVIMAB [Suspect]
     Active Substance: NIRSEVIMAB
     Dates: start: 20241025, end: 20241025

REACTIONS (9)
  - Respiratory syncytial virus test positive [Unknown]
  - Respiratory syncytial virus bronchiolitis [Recovered/Resolved with Sequelae]
  - Rhinitis [Unknown]
  - Cough [Unknown]
  - Hypotonia [Unknown]
  - Cyanosis [Unknown]
  - Use of accessory respiratory muscles [Unknown]
  - Lower respiratory tract congestion [Unknown]
  - Pyrexia [Unknown]

NARRATIVE: CASE EVENT DATE: 20241119
